FAERS Safety Report 8316596-3 (Version None)
Quarter: 2012Q2

REPORT INFORMATION
  Report Type: 
  Country: None (occurrence: None)
  Receive Date: 20120427
  Receipt Date: 20120424
  Transmission Date: 20120825
  Serious: Yes (Other)
  Sender: FDA-Public Use
  Company Number: PHHY2012BE014742

PATIENT
  Age: 63 Year
  Sex: Female

DRUGS (1)
  1. ZOLEDRONOC ACID [Suspect]
     Indication: OSTEOPOROSIS
     Dosage: 5 MG, ONCE YEARLY
     Route: 042
     Dates: start: 20110801

REACTIONS (10)
  - OSTEONECROSIS OF JAW [None]
  - LYMPHADENOPATHY [None]
  - PAIN IN JAW [None]
  - ABSCESS JAW [None]
  - SOFT TISSUE INFECTION [None]
  - OSTEOMYELITIS [None]
  - ORAL DISORDER [None]
  - ORAL MUCOSAL ERYTHEMA [None]
  - GINGIVAL INFECTION [None]
  - APHAGIA [None]
